FAERS Safety Report 11772509 (Version 2)
Quarter: 2015Q4

REPORT INFORMATION
  Report Type: Spontaneous
  Country: RO (occurrence: RO)
  Receive Date: 20151124
  Receipt Date: 20151130
  Transmission Date: 20160304
  Serious: Yes (Congenital Anomaly, Other)
  Sender: FDA-Public Use
  Company Number: RO-VIIV HEALTHCARE LIMITED-RO2015GSK163418

PATIENT
  Age: 4 Year
  Sex: Male
  Weight: 3 kg

DRUGS (4)
  1. ZIDOVUDINE + LAMIVUDINE [Suspect]
     Active Substance: LAMIVUDINE\ZIDOVUDINE
     Indication: HIV INFECTION
     Route: 064
  2. NEVIRAPINE. [Suspect]
     Active Substance: NEVIRAPINE
     Indication: HIV INFECTION
     Route: 064
  3. ZIDOVUDINE + LAMIVUDINE [Suspect]
     Active Substance: LAMIVUDINE\ZIDOVUDINE
     Indication: HEPATITIS B
  4. NEVIRAPINE. [Suspect]
     Active Substance: NEVIRAPINE
     Indication: HEPATITIS B

REACTIONS (7)
  - Brain malformation [Unknown]
  - Cerebral ventricle dilatation [Unknown]
  - Dandy-Walker syndrome [Unknown]
  - Cerebellar hypoplasia [Unknown]
  - Psychomotor retardation [Unknown]
  - Congenital central nervous system anomaly [Unknown]
  - Posterior fossa syndrome [Unknown]

NARRATIVE: CASE EVENT DATE: 2011
